FAERS Safety Report 6442254-6 (Version None)
Quarter: 2009Q4

REPORT INFORMATION
  Report Type: 
  Country: None (occurrence: None)
  Receive Date: 20091112
  Receipt Date: 20091029
  Transmission Date: 20100525
  Serious: Yes (Hospitalization)
  Sender: FDA-Public Use
  Company Number: THQ2009A04346

PATIENT
  Age: 53 Year
  Sex: Female

DRUGS (10)
  1. COMPETACT (PIOGLITAXONE HYDROCHLORIDE, METFORMIN HYDROCHLORIDE) [Suspect]
     Indication: TYPE 2 DIABETES MELLITUS
     Dosage: 5 MG PIOGLITAZONE HYDROCHLORIDE AND 850 MG METFORMIN, 2D (2 IN 1 D) PER ORAL
     Route: 048
     Dates: start: 20090716, end: 20090724
  2. GLIMEPIRIDE [Concomitant]
  3. METFORMIN HCL [Concomitant]
  4. HYDROCHLOROTHIAZIDE,TELMISARTAN [Concomitant]
  5. AGEN (AMLODIPINE BESILATE) [Concomitant]
  6. CONCUR (BISOPROLOL FUMARATE) [Concomitant]
  7. TORVACARD (ATORVASTATIN) [Concomitant]
  8. THIOGAMMA (THIOCTIC ACID) [Concomitant]
  9. GLYVENOL (TRIBENOSIDE) [Concomitant]
  10. GINKO BILOBA (GINKGO BILOBA) [Concomitant]

REACTIONS (9)
  - ASTHENIA [None]
  - BLOOD GLUCOSE INCREASED [None]
  - CHILLS [None]
  - DECREASED APPETITE [None]
  - DEPRESSIVE SYMPTOM [None]
  - HYPERTENSIVE CRISIS [None]
  - PARAESTHESIA [None]
  - PHAEOCHROMOCYTOMA [None]
  - VERTIGO [None]
